FAERS Safety Report 9548123 (Version 2)
Quarter: 2013Q4

REPORT INFORMATION
  Report Type: Spontaneous
  Country: US (occurrence: US)
  Receive Date: 20130924
  Receipt Date: 20131105
  Transmission Date: 20140711
  Serious: No
  Sender: FDA-Public Use
  Company Number: US-UCBSA-097761

PATIENT
  Age: 57 Year
  Sex: Female
  Weight: 63.63 kg

DRUGS (5)
  1. KEPPRA [Suspect]
     Indication: GRAND MAL CONVULSION
     Route: 042
     Dates: start: 20130814, end: 20130814
  2. LOVENOX [Concomitant]
     Dosage: DAILY
  3. LORAZEPAM [Concomitant]
     Dosage: ONCE
     Route: 042
  4. VALPROATE SODIUM [Concomitant]
     Indication: GRAND MAL CONVULSION
     Route: 042
     Dates: start: 20130814, end: 20130814
  5. NACL (0.9%) [Concomitant]
     Indication: FLUID REPLACEMENT
     Dosage: 100 ML/HR (DOSE STRENGTH:0.9%)
     Route: 042
     Dates: start: 20130814, end: 20130814

REACTIONS (1)
  - Injection site ulcer [Not Recovered/Not Resolved]
